FAERS Safety Report 6577972-2 (Version None)
Quarter: 2010Q1

REPORT INFORMATION
  Report Type: 
  Country: None (occurrence: None)
  Receive Date: 20100211
  Receipt Date: 20100208
  Transmission Date: 20100710
  Serious: Yes (Disabling, Other)
  Sender: FDA-Public Use
  Company Number: GB-BRISTOL-MYERS SQUIBB COMPANY-14735062

PATIENT
  Age: 21 Year
  Sex: Female
  Weight: 85 kg

DRUGS (4)
  1. ABILIFY [Suspect]
     Indication: PSYCHOTIC DISORDER
     Dosage: NOV08 TO 28APR09-10MG,28APR09-CONT(15MG),18JUL09 TO 18JUL09-5MG
     Route: 048
     Dates: start: 20081101
  2. DEPAKOTE [Concomitant]
     Indication: MOOD SWINGS
     Route: 048
     Dates: start: 20070101
  3. DIAZEPAM [Concomitant]
     Route: 048
     Dates: start: 20070801, end: 20090717
  4. PAROXETINE HCL [Concomitant]
     Indication: ANXIETY DISORDER
     Route: 048
     Dates: start: 20070101

REACTIONS (6)
  - DYSPHAGIA [None]
  - EMOTIONAL DISORDER [None]
  - HEADACHE [None]
  - HYPOTONIA [None]
  - MASKED FACIES [None]
  - SOMNOLENCE [None]
